FAERS Safety Report 4958258-6 (Version None)
Quarter: 2006Q1

REPORT INFORMATION
  Report Type: 
  Country: None (occurrence: None)
  Receive Date: 20060330
  Receipt Date: 20060323
  Transmission Date: 20060701
  Serious: Yes (Other)
  Sender: FDA-Public Use
  Company Number: US-BRISTOL-MYERS SQUIBB COMPANY-13326228

PATIENT

DRUGS (5)
  1. ATAZANAVIR [Suspect]
     Indication: HIV INFECTION
     Dosage: REDUCED FROM 400 MG DAILY WHEN RITONAVIR WAS STARTED
  2. EPIVIR [Interacting]
  3. VIREAD [Interacting]
  4. RITONAVIR [Interacting]
  5. BUPRENORPHINE HCL [Interacting]
     Indication: DRUG DEPENDENCE

REACTIONS (4)
  - DIZZINESS [None]
  - DRUG INTERACTION [None]
  - EUPHORIC MOOD [None]
  - SOMNOLENCE [None]
